FAERS Safety Report 16782915 (Version 3)
Quarter: 2023Q2

REPORT INFORMATION
  Report Type: Spontaneous
  Country: US (occurrence: US)
  Receive Date: 20190906
  Receipt Date: 20230417
  Transmission Date: 20230721
  Serious: Yes (Other)
  Sender: FDA-Public Use
  Company Number: US-GLAXOSMITHKLINE-US2019GSK162146

PATIENT

DRUGS (8)
  1. PREVACID 24 HR [Suspect]
     Active Substance: LANSOPRAZOLE
     Indication: Gastrooesophageal reflux disease
     Dosage: UNK
     Route: 048
  2. PREVACID 24 HR [Suspect]
     Active Substance: LANSOPRAZOLE
     Indication: Dyspepsia
  3. NEXIUM 24HR [Suspect]
     Active Substance: ESOMEPRAZOLE MAGNESIUM
     Indication: Product used for unknown indication
     Dosage: UNK
     Route: 065
  4. OMEPRAZOLE [Suspect]
     Active Substance: OMEPRAZOLE
     Indication: Gastrooesophageal reflux disease
     Dosage: 20 MG, QD
     Route: 065
  5. OMEPRAZOLE [Suspect]
     Active Substance: OMEPRAZOLE
     Indication: Dyspepsia
  6. OMEPRAZOLE [Suspect]
     Active Substance: OMEPRAZOLE
     Indication: Product used for unknown indication
     Dosage: 20 MG, BID
     Route: 048
  7. PANTOPRAZOLE [Suspect]
     Active Substance: PANTOPRAZOLE
     Indication: Gastrooesophageal reflux disease
     Dosage: 40 MG, QD
     Route: 048
  8. PANTOPRAZOLE [Suspect]
     Active Substance: PANTOPRAZOLE
     Indication: Dyspepsia

REACTIONS (16)
  - Chronic kidney disease [Not Recovered/Not Resolved]
  - Renal failure [Not Recovered/Not Resolved]
  - Hydronephrosis [Unknown]
  - Glomerulonephritis [Unknown]
  - Acute kidney injury [Unknown]
  - End stage renal disease [Unknown]
  - Chronic kidney disease-mineral and bone disorder [Unknown]
  - Renal impairment [Unknown]
  - Nephrogenic anaemia [Unknown]
  - Dialysis [Not Recovered/Not Resolved]
  - Haemodialysis [Unknown]
  - Nephropathy [Unknown]
  - Diabetic nephropathy [Unknown]
  - Haematuria [Unknown]
  - Proteinuria [Unknown]
  - Polyuria [Unknown]
